FAERS Safety Report 22336819 (Version 2)
Quarter: 2023Q2

REPORT INFORMATION
  Report Type: Spontaneous
  Country: IT (occurrence: IT)
  Receive Date: 20230518
  Receipt Date: 20230524
  Transmission Date: 20230721
  Serious: Yes (Other)
  Sender: FDA-Public Use
  Company Number: IT-BRISTOL-MYERS SQUIBB COMPANY-2023-015968

PATIENT
  Age: 14 Year
  Sex: Male

DRUGS (3)
  1. AZACITIDINE [Suspect]
     Active Substance: AZACITIDINE
     Indication: Acute myeloid leukaemia recurrent
     Dosage: 125 MILLIGRAM, QD (125 MG/DAY FOR 7 DAYS)
     Route: 065
  2. VENETOCLAX [Suspect]
     Active Substance: VENETOCLAX
     Indication: Acute myeloid leukaemia recurrent
     Dosage: 100 MILLIGRAM, QD (FOR 28 DAYS)
     Route: 065
  3. VENETOCLAX [Suspect]
     Active Substance: VENETOCLAX
     Dosage: 800 MILLIGRAM, QD (FOR 28 DAYS)
     Route: 065

REACTIONS (11)
  - Escherichia sepsis [Unknown]
  - Staphylococcal sepsis [Unknown]
  - Stenotrophomonas infection [Unknown]
  - Stomatitis [Unknown]
  - Oedema peripheral [Unknown]
  - Fluid retention [Recovered/Resolved]
  - Infection [Recovered/Resolved]
  - Diarrhoea [Unknown]
  - Urticaria [Recovered/Resolved]
  - Off label use [Unknown]
  - Therapeutic product effect incomplete [Unknown]
